FAERS Safety Report 9812847 (Version 2)
Quarter: 2014Q1

REPORT INFORMATION
  Report Type: Spontaneous
  Country: US (occurrence: US)
  Receive Date: 20140113
  Receipt Date: 20140121
  Transmission Date: 20141002
  Serious: No
  Sender: FDA-Public Use
  Company Number: US-PFIZER INC-2014010002

PATIENT
  Age: 61 Year
  Sex: Female
  Weight: 90.7 kg

DRUGS (3)
  1. LYRICA [Suspect]
     Indication: FIBROMYALGIA
     Dosage: 75 MG, 2X/DAY
     Dates: start: 2010, end: 201401
  2. MIRAPEX [Concomitant]
     Indication: RESTLESS LEGS SYNDROME
     Dosage: 1 MG, 2X/DAY
  3. PROZAC [Concomitant]
     Indication: DEPRESSION
     Dosage: 60 MG, DAILY

REACTIONS (3)
  - Nausea [Unknown]
  - Pain [Unknown]
  - Feeling abnormal [Unknown]
